FAERS Safety Report 19139249 (Version 1)
Quarter: 2021Q2

REPORT INFORMATION
  Report Type: Spontaneous
  Country: US (occurrence: US)
  Receive Date: 20210415
  Receipt Date: 20210415
  Transmission Date: 20210717
  Serious: Yes (Hospitalization)
  Sender: FDA-Public Use
  Company Number: None

PATIENT
  Age: 66 Year
  Sex: Female
  Weight: 128.1 kg

DRUGS (2)
  1. METHOTREXATE. [Suspect]
     Active Substance: METHOTREXATE
     Dates: end: 20210325
  2. VINCRISTINE SULFATE. [Suspect]
     Active Substance: VINCRISTINE SULFATE
     Dates: end: 20210325

REACTIONS (8)
  - Arthralgia [None]
  - Haemoglobin decreased [None]
  - Chest pain [None]
  - Oxygen saturation decreased [None]
  - Dyspnoea [None]
  - Pain [None]
  - Platelet count decreased [None]
  - Back pain [None]

NARRATIVE: CASE EVENT DATE: 20210403
